FAERS Safety Report 5873902-7 (Version None)
Quarter: 2008Q3

REPORT INFORMATION
  Report Type: 
  Country: None (occurrence: None)
  Receive Date: 20080908
  Receipt Date: 20080902
  Transmission Date: 20090109
  Serious: Yes (Life-Threatening, Hospitalization)
  Sender: FDA-Public Use
  Company Number: US-CELGENEUS-163-21880-08031981

PATIENT
  Sex: Female

DRUGS (1)
  1. REVLIMID [Suspect]
     Indication: MULTIPLE MYELOMA
     Route: 048
     Dates: start: 20080305, end: 20080308

REACTIONS (6)
  - APPARENT LIFE THREATENING EVENT [None]
  - ERYTHEMA [None]
  - PYREXIA [None]
  - RASH [None]
  - SKIN LESION [None]
  - THROMBOCYTOPENIA [None]
